FAERS Safety Report 5903449-0 (Version None)
Quarter: 2008Q3

REPORT INFORMATION
  Report Type: 
  Country: None (occurrence: None)
  Receive Date: 20080926
  Receipt Date: 20080912
  Transmission Date: 20090109
  Serious: Yes (Death)
  Sender: FDA-Public Use
  Company Number: CHPA2008US15597

PATIENT
  Age: 17 Day
  Sex: Male

DRUGS (3)
  1. PSEUDOEPHEDRINE HCL [Suspect]
  2. DEXTROMETHORPHAN HYDROBROMIDE [Suspect]
  3. BROMPHENIRAMINE [Suspect]

REACTIONS (1)
  - NEONATAL PNEUMONIA [None]
